FAERS Safety Report 19685668 (Version 2)
Quarter: 2021Q3

REPORT INFORMATION
  Report Type: Spontaneous
  Country: CA (occurrence: CA)
  Receive Date: 20210811
  Receipt Date: 20210813
  Transmission Date: 20211014
  Serious: Yes (Hospitalization)
  Sender: FDA-Public Use
  Company Number: CA-PFIZER INC-202100985432

PATIENT
  Age: 65 Year
  Sex: Male

DRUGS (16)
  1. PREGABALIN. [Concomitant]
     Active Substance: PREGABALIN
  2. PREZISTA [Concomitant]
     Active Substance: DARUNAVIR ETHANOLATE
  3. VENLAFAXINE HYDROCHLORIDE. [Concomitant]
     Active Substance: VENLAFAXINE HYDROCHLORIDE
  4. ATORVASTATIN CALCIUM. [Suspect]
     Active Substance: ATORVASTATIN CALCIUM
     Indication: DYSLIPIDAEMIA
     Dosage: 10 MG, 1 EVERY 1 DAYS
     Route: 048
  5. QUETIAPINE. [Concomitant]
     Active Substance: QUETIAPINE
  6. ODEFSEY [Concomitant]
     Active Substance: EMTRICITABINE\RILPIVIRINE HYDROCHLORIDE\TENOFOVIR ALAFENAMIDE FUMARATE
  7. PANTOLOC [Interacting]
     Active Substance: PANTOPRAZOLE SODIUM
  8. PEPCID [Concomitant]
     Active Substance: FAMOTIDINE
  9. RITONAVIR. [Concomitant]
     Active Substance: RITONAVIR
  10. THIAMINE. [Concomitant]
     Active Substance: THIAMINE
  11. ASA [Concomitant]
     Active Substance: ASPIRIN
     Dosage: UNK
  12. CARDIZEM CD [Concomitant]
     Active Substance: DILTIAZEM HYDROCHLORIDE
     Dosage: UNK
  13. RISPERIDONE. [Concomitant]
     Active Substance: RISPERIDONE
  14. TIVICAY [Concomitant]
     Active Substance: DOLUTEGRAVIR SODIUM
  15. PERINDOPRIL [Concomitant]
     Active Substance: PERINDOPRIL
  16. VITAMIN D [VITAMIN D NOS] [Concomitant]
     Active Substance: VITAMIN D NOS

REACTIONS (6)
  - Abdominal pain [Recovered/Resolved]
  - Confusional state [Recovered/Resolved]
  - Dyspnoea [Recovered/Resolved]
  - Drug interaction [Recovered/Resolved]
  - Blood creatine phosphokinase increased [Recovered/Resolved]
  - Rhabdomyolysis [Recovered/Resolved]
